FAERS Safety Report 19857977 (Version 5)
Quarter: 2022Q1

REPORT INFORMATION
  Report Type: Spontaneous
  Country: UG (occurrence: UG)
  Receive Date: 20210921
  Receipt Date: 20220308
  Transmission Date: 20220423
  Serious: Yes (Death, Congenital Anomaly, Other)
  Sender: FDA-Public Use
  Company Number: UG-CIPLA (EU) LIMITED-2021UG06350

PATIENT

DRUGS (5)
  1. TENOFOVIR [Suspect]
     Active Substance: TENOFOVIR
     Dosage: UNK
     Route: 064
  2. TENOFOVIR [Suspect]
     Active Substance: TENOFOVIR
     Dosage: UNK
     Route: 064
  3. TENOFOVIR [Suspect]
     Active Substance: TENOFOVIR
     Dosage: UNK
     Route: 064
  4. EMTRICITABINE\TENOFOVIR DISOPROXIL FUMARATE [Suspect]
     Active Substance: EMTRICITABINE\TENOFOVIR DISOPROXIL FUMARATE
     Dosage: UNK
     Route: 064
  5. MEBENDAZOLE [Suspect]
     Active Substance: MEBENDAZOLE
     Dosage: UNK
     Route: 064

REACTIONS (4)
  - Exomphalos [Fatal]
  - Sepsis neonatal [Fatal]
  - Dehydration [Fatal]
  - Foetal exposure during pregnancy [Unknown]
